FAERS Safety Report 5129339-1 (Version None)
Quarter: 2006Q4

REPORT INFORMATION
  Report Type: 
  Country: None (occurrence: None)
  Receive Date: 20061011
  Receipt Date: 20060927
  Transmission Date: 20070319
  Serious: Yes (Other)
  Sender: FDA-Public Use
  Company Number: 2006BH013636

PATIENT
  Age: 79 Year
  Sex: Female

DRUGS (1)
  1. BALANCED SALT SOLUTION (STERILE IRRIGATION SOLUTION) [Suspect]
     Indication: CATARACT OPERATION
     Dosage: TOP
     Route: 061

REACTIONS (1)
  - KERATOPATHY [None]
